FAERS Safety Report 23409811 (Version 2)
Quarter: 2024Q1

REPORT INFORMATION
  Report Type: Spontaneous
  Country: US (occurrence: US)
  Receive Date: 20240117
  Receipt Date: 20240208
  Transmission Date: 20240410
  Serious: No
  Sender: FDA-Public Use
  Company Number: US-PFIZER INC-PV202300125734

PATIENT
  Age: 67 Year
  Sex: Female

DRUGS (3)
  1. CIBINQO [Suspect]
     Active Substance: ABROCITINIB
     Indication: Lichen planopilaris
     Dosage: 50 MG, 1X/DAY
     Route: 048
  2. CIBINQO [Suspect]
     Active Substance: ABROCITINIB
     Dosage: 100 MG TABLET QOD (EVERY OTHER DAY)
  3. CIBINQO [Suspect]
     Active Substance: ABROCITINIB
     Dosage: 100 MG ONCE DAILY
     Route: 048

REACTIONS (5)
  - Off label use [Unknown]
  - Skin lesion [Unknown]
  - Rash [Unknown]
  - Drug hypersensitivity [Unknown]
  - Drug effective for unapproved indication [Unknown]
